FAERS Safety Report 11927054 (Version 2)
Quarter: 2016Q1

REPORT INFORMATION
  Report Type: Report from Study
  Country: US (occurrence: US)
  Receive Date: 20160119
  Receipt Date: 20160218
  Transmission Date: 20160526
  Serious: Yes (Other)
  Sender: FDA-Public Use
  Company Number: US-AMGEN-USASL2015140824

PATIENT
  Age: 73 Year
  Sex: Female
  Weight: 67.57 kg

DRUGS (22)
  1. LEVOTHYROXINE. [Concomitant]
     Active Substance: LEVOTHYROXINE
     Dosage: 50 MUG, QD
     Route: 048
  2. LORAZEPAM. [Concomitant]
     Active Substance: LORAZEPAM
     Dosage: 1 MG, TID
     Route: 048
  3. PROLIA [Suspect]
     Active Substance: DENOSUMAB
     Indication: OSTEOPOROSIS POSTMENOPAUSAL
     Dosage: 60 MG, Q6MO
     Route: 058
     Dates: start: 20150526, end: 20150527
  4. ATORVASTATIN [Concomitant]
     Active Substance: ATORVASTATIN
     Dosage: 10 MG, QD
     Route: 048
  5. CICLOPIROX. [Concomitant]
     Active Substance: CICLOPIROX
     Dosage: 08 %, UNK
     Route: 061
  6. CYMBALTA [Concomitant]
     Active Substance: DULOXETINE HYDROCHLORIDE
     Dosage: 60 MG, QD
     Route: 048
     Dates: start: 20160107
  7. FENOFIBRATE. [Concomitant]
     Active Substance: FENOFIBRATE
     Dosage: 160 MG, QD
     Route: 048
  8. AZILECT [Concomitant]
     Active Substance: RASAGILINE MESYLATE
     Dosage: 1 MG, QD
     Route: 048
     Dates: start: 20150911
  9. GABAPENTIN. [Concomitant]
     Active Substance: GABAPENTIN
     Dosage: 100 MG, QD
     Route: 048
  10. SERTRALINE [Concomitant]
     Active Substance: SERTRALINE HYDROCHLORIDE
     Dosage: 100 MG, UNK
     Route: 048
  11. ENTERIC ASPIRIN [Concomitant]
     Active Substance: ASPIRIN
     Dosage: 325 MG, UNK
  12. ONE A DAY WOMEN^S [Concomitant]
     Active Substance: MINERALS\VITAMINS
  13. VITAMIN B12 + FOLIC ACID [Concomitant]
     Dosage: 0.5/1 MG
     Route: 048
     Dates: start: 20130320
  14. VITAMIN D                          /00107901/ [Concomitant]
     Active Substance: ERGOCALCIFEROL
     Dosage: 1000 IU, UNK
  15. ROPINIROLE. [Concomitant]
     Active Substance: ROPINIROLE
     Dosage: 0.5/1 MG, QD
     Route: 048
  16. CALTRATE 600+D3 PLUS MINERALS      /07240601/ [Concomitant]
     Dosage: UNK UNK, QD
     Route: 048
     Dates: start: 20130320
  17. OYSTERCAL D [Concomitant]
  18. VITAMIN D3 [Concomitant]
     Active Substance: CHOLECALCIFEROL
     Dosage: UNK UNK, QD
     Dates: start: 20130320
  19. DONEPEZIL. [Concomitant]
     Active Substance: DONEPEZIL
     Dosage: 10 MG, QD
     Route: 048
  20. HYDROCODONE BITARTRATE AND ACETAMINOPHEN [Concomitant]
     Active Substance: ACETAMINOPHEN\HYDROCODONE BITARTRATE
     Dosage: 5/325 MG, UNK
     Route: 048
  21. VITAMIN C [Concomitant]
     Active Substance: ASCORBIC ACID
     Dosage: UNK UNK, QD
     Dates: start: 20130320
  22. VITAMIN E DL-ALPHA [Concomitant]
     Dosage: 400 UNIT, BID
     Route: 048
     Dates: start: 20130822

REACTIONS (7)
  - Drug hypersensitivity [Unknown]
  - Swelling face [Unknown]
  - Erythema multiforme [Recovered/Resolved]
  - Paraesthesia oral [Recovered/Resolved]
  - Local swelling [Unknown]
  - Erythema [Unknown]
  - Jaw disorder [Unknown]

NARRATIVE: CASE EVENT DATE: 20150526
